FAERS Safety Report 16920141 (Version 5)
Quarter: 2019Q4

REPORT INFORMATION
  Report Type: Report from Study
  Country: SE (occurrence: SE)
  Receive Date: 20191015
  Receipt Date: 20191202
  Transmission Date: 20200122
  Serious: Yes (Death, Life-Threatening, Hospitalization)
  Sender: FDA-Public Use
  Company Number: SE-EISAI MEDICAL RESEARCH-EC-2019-059228

PATIENT
  Age: 65 Year
  Sex: Male
  Weight: 89 kg

DRUGS (14)
  1. TROMBYL [Concomitant]
     Active Substance: ASPIRIN
     Dates: start: 20141216, end: 20190719
  2. CILAXORAL [Concomitant]
     Active Substance: SODIUM PICOSULFATE
     Dates: start: 20190425
  3. OXYNORM [Concomitant]
     Active Substance: OXYCODONE HYDROCHLORIDE
     Dates: start: 20190603, end: 20190719
  4. PEMBROLIZUMAB. [Suspect]
     Active Substance: PEMBROLIZUMAB
     Indication: MALIGNANT MELANOMA
     Route: 041
     Dates: start: 20190611, end: 20190611
  5. XGEVA [Concomitant]
     Active Substance: DENOSUMAB
     Dates: start: 20190514, end: 20190719
  6. PIPERACILIN/TAZOBACTAM [Concomitant]
     Active Substance: PIPERACILLIN SODIUM\TAZOBACTAM SODIUM
     Dates: start: 20190620, end: 20190626
  7. LENVATINIB [Suspect]
     Active Substance: LENVATINIB
     Route: 048
     Dates: start: 20190619, end: 20190620
  8. LENVATINIB [Suspect]
     Active Substance: LENVATINIB
     Indication: MALIGNANT MELANOMA
     Route: 048
     Dates: start: 20190611, end: 20190613
  9. CALCICHEW D3 [Concomitant]
     Active Substance: CALCIUM\CHOLECALCIFEROL
     Dates: start: 20190514, end: 20190719
  10. LEVAXIN [Concomitant]
     Active Substance: LEVOTHYROXINE SODIUM
     Dates: start: 20180620, end: 20190719
  11. OXYCONTIN [Concomitant]
     Active Substance: OXYCODONE HYDROCHLORIDE
     Dates: start: 20190612, end: 20190719
  12. BETAMETHASONE. [Concomitant]
     Active Substance: BETAMETHASONE
     Dates: start: 20190618
  13. ACETAMINOPHEN. [Concomitant]
     Active Substance: ACETAMINOPHEN
     Dates: start: 20190426, end: 20190719
  14. ATORVASTATIN [Concomitant]
     Active Substance: ATORVASTATIN
     Dates: start: 20141216, end: 20190719

REACTIONS (1)
  - Platelet count decreased [Fatal]

NARRATIVE: CASE EVENT DATE: 20190703
